FAERS Safety Report 6676501-2 (Version None)
Quarter: 2010Q2

REPORT INFORMATION
  Report Type: 
  Country: None (occurrence: None)
  Receive Date: 20100412
  Receipt Date: 20100408
  Transmission Date: 20101027
  Serious: Yes (Death)
  Sender: FDA-Public Use
  Company Number: PHHY2010JP21826

PATIENT
  Age: 65 Year
  Sex: Female

DRUGS (3)
  1. RASILEZ [Suspect]
     Indication: HYPERTENSION
     Dosage: 150 MG, DAILY
     Route: 048
  2. DIOVAN [Suspect]
     Dosage: 160 MG, DAILY
     Route: 048
  3. COUGHCODE [Concomitant]
     Dosage: 6 DF, UNK
     Route: 048

REACTIONS (1)
  - SUDDEN DEATH [None]
